FAERS Safety Report 6793555 (Version 3)
Quarter: 2013Q3

REPORT INFORMATION
  Report Type: Spontaneous
  Country: US (occurrence: US)
  Receive Date: 20081022
  Receipt Date: 20130717
  Transmission Date: 20140515
  Serious: Yes (Hospitalization)
  Sender: FDA-Public Use
  Company Number: US-JNJFOC-20081003894

PATIENT
  Age: 20 Year
  Sex: Female
  Weight: 70.48 kg

DRUGS (2)
  1. TRI-SPRINTEC [Suspect]
     Indication: PRODUCT USED FOR UNKNOWN INDICATION
     Route: 065
  2. ORTHO TRI-CYCLEN LO [Suspect]
     Indication: CONTRACEPTION
     Route: 048
     Dates: start: 2006, end: 200810

REACTIONS (2)
  - Thrombosis [Recovered/Resolved]
  - Knee operation [Recovered/Resolved]
